FAERS Safety Report 19039011 (Version 5)
Quarter: 2022Q3

REPORT INFORMATION
  Report Type: Spontaneous
  Country: JP (occurrence: JP)
  Receive Date: 20210322
  Receipt Date: 20220714
  Transmission Date: 20221027
  Serious: Yes (Death, Hospitalization, Disabling, Other)
  Sender: FDA-Public Use
  Company Number: JP-GLAXOSMITHKLINE-JP2021JPN065493

PATIENT

DRUGS (34)
  1. LAMICTAL [Suspect]
     Active Substance: LAMOTRIGINE
     Indication: Affect lability
     Dosage: 25 MG, QOD
     Route: 048
     Dates: start: 20170629, end: 20170712
  2. LAMICTAL [Suspect]
     Active Substance: LAMOTRIGINE
     Indication: Bipolar disorder
     Dosage: 25 MG, QD
     Route: 048
     Dates: start: 20170713, end: 20170726
  3. LAMICTAL [Suspect]
     Active Substance: LAMOTRIGINE
     Dosage: 50 MG, QD
     Route: 048
     Dates: start: 20170727, end: 20170807
  4. DUTASTERIDE [Suspect]
     Active Substance: DUTASTERIDE
     Indication: Benign prostatic hyperplasia
     Dosage: 0.5 MG, QD
     Route: 048
     Dates: start: 20170524, end: 20170808
  5. QUETIAPINE FUMARATE [Concomitant]
     Active Substance: QUETIAPINE FUMARATE
     Indication: Sedation
     Dosage: 400 MG, QD
     Route: 048
     Dates: start: 20150821, end: 20170807
  6. QUETIAPINE FUMARATE [Concomitant]
     Active Substance: QUETIAPINE FUMARATE
     Indication: Affect lability
  7. VALPROATE SODIUM [Concomitant]
     Active Substance: VALPROATE SODIUM
     Indication: Affect lability
     Dosage: 400 MG, BID
     Route: 048
     Dates: start: 20160527, end: 20170807
  8. HIRNAMIN TABLET [Concomitant]
     Indication: Sedation
     Dosage: 12.5 MG, QD
     Route: 048
     Dates: start: 20170629, end: 20170807
  9. LUNESTA TABLETS [Concomitant]
     Indication: Insomnia
     Dosage: 2 MG, QD
     Route: 048
     Dates: start: 20161111, end: 20170807
  10. TRAMCET COMBINATION TABLETS [Concomitant]
     Indication: Analgesic therapy
     Dosage: 1 DF, TID
     Dates: start: 20170608
  11. METOCLOPRAMIDE [Concomitant]
     Active Substance: METOCLOPRAMIDE
     Indication: Abdominal discomfort
     Dosage: 5 MG, TID
     Dates: start: 20170608
  12. LORCAM TABLETS [Concomitant]
     Indication: Antiinflammatory therapy
     Dosage: 4 MG, TID
     Dates: start: 20170608
  13. LORCAM TABLETS [Concomitant]
     Indication: Analgesic therapy
  14. EPERISONE HYDROCHLORIDE TABLETS [Concomitant]
     Indication: Muscle tightness
     Dosage: 50 MG, TID
     Dates: start: 20170608
  15. REBAMIPIDE TABLETS [Concomitant]
     Indication: Gastric mucosal lesion
     Dosage: 100 MG, TID
     Dates: start: 20170608
  16. ZEPOLAS TAPE [Concomitant]
     Indication: Analgesic therapy
     Dosage: 1 DF, QD
     Dates: start: 20170608
  17. DICLOFENAC NA GEL [Concomitant]
     Indication: Analgesic therapy
     Dosage: UNK
     Dates: start: 20170608
  18. BAYASPIRIN TABLETS [Concomitant]
     Indication: Thrombosis prophylaxis
     Dosage: 100 MG, QD
     Dates: start: 20170710
  19. AMLODIPINE BESYLATE [Concomitant]
     Active Substance: AMLODIPINE BESYLATE
     Indication: Hypertension
     Dosage: 2.5 MG, QD
     Dates: start: 20170710
  20. XARELTO TABLETS [Concomitant]
     Indication: Thrombosis prophylaxis
     Dosage: 15 MG, QD
     Dates: start: 20170710
  21. ATENOLOL [Concomitant]
     Active Substance: ATENOLOL
     Indication: Hypertension
     Dosage: 25 MG, QD
     Dates: start: 20170710
  22. PARIET TABLET [Concomitant]
     Indication: Peptic ulcer
     Dosage: 10 MG, QD
     Dates: start: 20170710
  23. FEBUXOSTAT [Concomitant]
     Active Substance: FEBUXOSTAT
     Indication: Blood uric acid increased
     Dosage: 40 MG, QD
     Dates: start: 20170710
  24. ZETIA TABLETS [Concomitant]
     Indication: Hyperlipidaemia
     Dosage: 10 MG, QD
     Dates: start: 20170710
  25. PITAVASTATIN CA TABLETS [Concomitant]
     Indication: Hyperlipidaemia
     Dosage: 2 MG, QD
     Dates: start: 20170710
  26. AMLODIPINE BESYLATE\AZILSARTAN [Concomitant]
     Active Substance: AMLODIPINE BESYLATE\AZILSARTAN
     Indication: Hypertension
     Dosage: 1 DF, QD
     Dates: start: 20170710
  27. MIYA-BM [Concomitant]
     Active Substance: CLOSTRIDIUM BUTYRICUM SPORES STRAIN M-55
     Indication: Dysbiosis
     Dosage: 1 DF, TID
     Dates: start: 20170710
  28. UNSPECIFIED INGREDIENT [Concomitant]
     Active Substance: UNSPECIFIED INGREDIENT
     Indication: Abdominal discomfort
     Dosage: 2.5 G, TID
     Dates: start: 20170710
  29. URIEF OD [Concomitant]
     Indication: Dysuria
     Dosage: 4 MG, BID
     Dates: start: 20170524
  30. CIPROFLOXACIN [Concomitant]
     Active Substance: CIPROFLOXACIN
     Indication: Urinary tract infection
     Dosage: 200 MG, BID
     Dates: start: 20170524
  31. AROFUTO [Concomitant]
     Indication: Muscle tightness
     Dosage: 20 MG, TID
     Dates: start: 20170714
  32. LOXOPROFEN SODIUM [Concomitant]
     Active Substance: LOXOPROFEN SODIUM
     Indication: Analgesic therapy
     Dosage: 60 MG, TID
     Dates: start: 20170714
  33. KETOPROFEN [Concomitant]
     Active Substance: KETOPROFEN
     Indication: Antiinflammatory therapy
     Dosage: UNK
     Dates: start: 20170714
  34. KETOPROFEN [Concomitant]
     Active Substance: KETOPROFEN
     Indication: Analgesic therapy

REACTIONS (20)
  - Toxic epidermal necrolysis [Fatal]
  - Stevens-Johnson syndrome [Fatal]
  - Respiratory failure [Fatal]
  - Pyrexia [Not Recovered/Not Resolved]
  - Oropharyngeal pain [Not Recovered/Not Resolved]
  - Rash [Not Recovered/Not Resolved]
  - Skin exfoliation [Not Recovered/Not Resolved]
  - Drug-induced liver injury [Not Recovered/Not Resolved]
  - Erythema [Not Recovered/Not Resolved]
  - Blister [Not Recovered/Not Resolved]
  - Oral mucosa erosion [Not Recovered/Not Resolved]
  - Lip erosion [Not Recovered/Not Resolved]
  - Pneumonia aspiration [Not Recovered/Not Resolved]
  - Full blood count decreased [Recovered/Resolved]
  - Acute kidney injury [Recovering/Resolving]
  - Cytomegalovirus infection [Recovering/Resolving]
  - Pseudomonal sepsis [Recovering/Resolving]
  - Candida sepsis [Recovering/Resolving]
  - Gastrointestinal perforation [Not Recovered/Not Resolved]
  - Immobilisation syndrome [Not Recovered/Not Resolved]

NARRATIVE: CASE EVENT DATE: 20170804
